FAERS Safety Report 13238806 (Version 3)
Quarter: 2017Q2

REPORT INFORMATION
  Report Type: Report from Study
  Country: AU (occurrence: AU)
  Receive Date: 20170216
  Receipt Date: 20170413
  Transmission Date: 20170830
  Serious: Yes (Hospitalization, Other)
  Sender: FDA-Public Use
  Company Number: PHHO2013AU017245

PATIENT
  Age: 77 Year
  Sex: Female
  Weight: 55.5 kg

DRUGS (7)
  1. PLACEBO [Suspect]
     Active Substance: UNSPECIFIED INGREDIENT
     Dosage: 2 MG, QD
     Route: 048
     Dates: end: 20140212
  2. PROPOFOL. [Concomitant]
     Active Substance: PROPOFOL
     Indication: ANAESTHETIC PREMEDICATION
     Dosage: 150 MG, ONCE/SINGLE
     Route: 042
     Dates: start: 20130125, end: 20130125
  3. FENTANYL. [Concomitant]
     Active Substance: FENTANYL
     Indication: ANAESTHETIC PREMEDICATION
     Dosage: 30 UG, ONCE/SINGLE
     Route: 042
     Dates: start: 20130125, end: 20130125
  4. DABRAFENIB [Suspect]
     Active Substance: DABRAFENIB
     Indication: MALIGNANT MELANOMA
     Dosage: 150 MG, BID
     Route: 048
     Dates: start: 20121024, end: 20130115
  5. TREMADOL [Concomitant]
     Active Substance: TRAMADOL HYDROCHLORIDE
     Indication: CHEST PAIN
     Dosage: 100 MG, BID
     Route: 048
     Dates: start: 20121231, end: 20130409
  6. DABRAFENIB [Suspect]
     Active Substance: DABRAFENIB
     Dosage: 100 MG, BID
     Route: 048
     Dates: start: 20130131, end: 20140212
  7. PLACEBO [Suspect]
     Active Substance: UNSPECIFIED INGREDIENT
     Indication: MALIGNANT MELANOMA
     Dosage: 2 MG, QD
     Route: 048
     Dates: start: 20121024, end: 20130115

REACTIONS (1)
  - Cardiac failure [Recovered/Resolved]

NARRATIVE: CASE EVENT DATE: 20121231
